FAERS Safety Report 6300216-3 (Version None)
Quarter: 2009Q3

REPORT INFORMATION
  Report Type: 
  Country: None (occurrence: None)
  Receive Date: 20090806
  Receipt Date: 20090731
  Transmission Date: 20100115
  Serious: Yes (Death)
  Sender: FDA-Public Use
  Company Number: JP-ABBOTT-09P-087-0588797-00

PATIENT
  Sex: Male

DRUGS (7)
  1. KALETRA [Suspect]
     Indication: HIV INFECTION
     Dosage: 4 TABS DAILY
     Route: 048
     Dates: start: 20061012, end: 20090113
  2. KALETRA [Suspect]
     Indication: HIV INFECTION
     Dosage: 10 ML DAILY
     Route: 048
     Dates: start: 20090114, end: 20090305
  3. EPIVIR [Suspect]
     Indication: HIV INFECTION
     Route: 048
     Dates: start: 20060406, end: 20090305
  4. EFAVIRENZ (STOCKRIN) (NON-ABBOTT) [Suspect]
     Indication: HIV INFECTION
     Dosage: 600 MG DAILY
     Dates: start: 20060406, end: 20090305
  5. HYDROCORTISONE [Concomitant]
     Indication: CYTOMEGALOVIRUS INFECTION
     Dates: start: 20060406, end: 20090305
  6. HYDROCORTISONE [Concomitant]
     Indication: ADRENAL INSUFFICIENCY
  7. LEVOTHYROXINE SODIUM HYDRATE [Concomitant]
     Indication: HYPOTHYROIDISM
     Dates: start: 20060406, end: 20090305

REACTIONS (1)
  - INFLUENZA [None]
